FAERS Safety Report 4751387-1 (Version None)
Quarter: 2005Q3

REPORT INFORMATION
  Report Type: 
  Country: None (occurrence: None)
  Receive Date: 20050822
  Receipt Date: 20050810
  Transmission Date: 20060218
  Serious: Yes (Hospitalization)
  Sender: FDA-Public Use
  Company Number: MEDI-0003601

PATIENT
  Age: 49 Year
  Sex: Male

DRUGS (10)
  1. ETHYOL [Suspect]
     Indication: RADIOTHERAPY
     Dosage: 500 MG, 5 IN 1 WK, INTRAVENOUS
     Route: 042
     Dates: start: 20050518, end: 20050602
  2. RADIATION  THERAPY [Concomitant]
  3. TAXOL [Concomitant]
  4. FLUOROURACIL [Concomitant]
  5. HYDREA [Concomitant]
  6. SALAGEN [Concomitant]
  7. NEXIUM [Concomitant]
  8. PERCOCET [Concomitant]
  9. ANZEMET (DOLASETRON MESILATE) [Concomitant]
  10. DEXAMETHASONE [Concomitant]

REACTIONS (16)
  - AGITATION [None]
  - ANXIETY [None]
  - CHEST DISCOMFORT [None]
  - CHEST PAIN [None]
  - CHILLS [None]
  - DYSPNOEA [None]
  - FEELING ABNORMAL [None]
  - FLUSHING [None]
  - HEADACHE [None]
  - LIVER FUNCTION TEST ABNORMAL [None]
  - NAUSEA [None]
  - NECK PAIN [None]
  - PRURITUS [None]
  - SEPSIS [None]
  - SNEEZING [None]
  - VOMITING [None]
